FAERS Safety Report 18938137 (Version 1)
Quarter: 2021Q1

REPORT INFORMATION
  Report Type: Other
  Country: FR (occurrence: FR)
  Receive Date: 20210225
  Receipt Date: 20210225
  Transmission Date: 20210420
  Serious: Yes (Disabling)
  Sender: FDA-Public Use
  Company Number: FR-DENTSPLY-2021SCDP000053

PATIENT
  Age: 46 Year
  Sex: Male
  Weight: 68 kg

DRUGS (1)
  1. XYLOCAINE WITH ADRENALINE (EPINEPHRINE) [Suspect]
     Active Substance: EPINEPHRINE BITARTRATE\LIDOCAINE HYDROCHLORIDE

REACTIONS (4)
  - Paraesthesia [None]
  - Arthralgia [None]
  - Anaesthetic complication [None]
  - Impaired work ability [Recovered/Resolved]

NARRATIVE: CASE EVENT DATE: 20190401
